FAERS Safety Report 5494014-0 (Version None)
Quarter: 2007Q4

REPORT INFORMATION
  Report Type: 
  Country: None (occurrence: None)
  Receive Date: 20071023
  Receipt Date: 20071011
  Transmission Date: 20080405
  Serious: Yes (Other)
  Sender: FDA-Public Use
  Company Number: US-PFIZER INC-2007082063

PATIENT
  Sex: Female
  Weight: 77.1 kg

DRUGS (4)
  1. CHANTIX [Suspect]
     Indication: SMOKING CESSATION THERAPY
     Route: 048
     Dates: start: 20070101, end: 20071010
  2. ACIPHEX [Concomitant]
  3. TRAZODONE HCL [Concomitant]
  4. HYDROCHLOROTHIAZIDE [Concomitant]

REACTIONS (7)
  - ANGER [None]
  - DEPRESSION [None]
  - EMOTIONAL DISORDER [None]
  - HEADACHE [None]
  - MIGRAINE [None]
  - MUSCLE SPASMS [None]
  - VISION BLURRED [None]
